FAERS Safety Report 25044291 (Version 1)
Quarter: 2025Q1

REPORT INFORMATION
  Report Type: Spontaneous
  Country: IN (occurrence: IN)
  Receive Date: 20250306
  Receipt Date: 20250306
  Transmission Date: 20250408
  Serious: Yes (Other)
  Sender: ABBVIE
  Company Number: IN-ABBVIE-6107257

PATIENT
  Age: 65 Year
  Sex: Male

DRUGS (2)
  1. OZURDEX [Suspect]
     Active Substance: DEXAMETHASONE
     Indication: Retinal vein occlusion
     Route: 050
  2. OZURDEX [Suspect]
     Active Substance: DEXAMETHASONE
     Route: 050
     Dates: start: 20250109

REACTIONS (5)
  - Endophthalmitis [Recovered/Resolved]
  - Product contamination microbial [Unknown]
  - Eye pain [Unknown]
  - Ocular hyperaemia [Unknown]
  - Hypopyon [Unknown]

NARRATIVE: CASE EVENT DATE: 20250111
